FAERS Safety Report 12177479 (Version 2)
Quarter: 2016Q2

REPORT INFORMATION
  Report Type: Spontaneous
  Country: DE (occurrence: DE)
  Receive Date: 20160314
  Receipt Date: 20160613
  Transmission Date: 20160815
  Serious: Yes (Other)
  Sender: FDA-Public Use
  Company Number: DE-TAKEDA-2016TUS004087

PATIENT

DRUGS (3)
  1. ADENURIC [Suspect]
     Active Substance: FEBUXOSTAT
     Dosage: 120 MG, QD
     Route: 048
     Dates: start: 201602, end: 2016
  2. ADENURIC [Suspect]
     Active Substance: FEBUXOSTAT
     Indication: HYPERURICAEMIA
     Dosage: 80 MG, QD
     Route: 048
     Dates: end: 201602
  3. ADENURIC [Suspect]
     Active Substance: FEBUXOSTAT
     Dosage: 80 MG, QD
     Route: 048
     Dates: end: 201602

REACTIONS (3)
  - Blood creatine phosphokinase increased [Recovered/Resolved]
  - Troponin increased [Recovered/Resolved]
  - Rhabdomyolysis [Recovered/Resolved]

NARRATIVE: CASE EVENT DATE: 2016
